FAERS Safety Report 6024995-8 (Version None)
Quarter: 2008Q4

REPORT INFORMATION
  Report Type: 
  Country: None (occurrence: None)
  Receive Date: 20081231
  Receipt Date: 20081222
  Transmission Date: 20090506
  Serious: Yes (Hospitalization)
  Sender: FDA-Public Use
  Company Number: FR-AVENTIS-200814464FR

PATIENT
  Age: 41 Year
  Sex: Female

DRUGS (10)
  1. NOZINAN                            /00038601/ [Suspect]
     Indication: DEPRESSIVE SYMPTOM
     Route: 048
     Dates: start: 20080301
  2. LASIX [Suspect]
     Route: 048
     Dates: start: 20080401
  3. RIVOTRIL [Suspect]
     Route: 048
     Dates: start: 20030601
  4. LYRICA [Suspect]
     Indication: DRUG USE FOR UNKNOWN INDICATION
     Route: 048
     Dates: start: 20060901
  5. ANAFRANIL [Suspect]
     Route: 048
     Dates: start: 20070701
  6. TYSABRI [Suspect]
     Indication: MULTIPLE SCLEROSIS
     Route: 042
     Dates: start: 20071127
  7. SEROPLEX [Suspect]
     Indication: DEPRESSION
     Route: 048
     Dates: start: 20080301
  8. EFFEXOR [Suspect]
     Indication: DEPRESSION
     Route: 048
     Dates: start: 20080701
  9. TRANXENE [Suspect]
     Indication: ANXIETY
     Route: 048
     Dates: start: 20080801
  10. TAHOR [Suspect]
     Indication: HYPERCHOLESTEROLAEMIA
     Route: 048

REACTIONS (1)
  - SUICIDE ATTEMPT [None]
